FAERS Safety Report 5590832-9 (Version None)
Quarter: 2008Q1

REPORT INFORMATION
  Report Type: 
  Country: None (occurrence: None)
  Receive Date: 20080110
  Receipt Date: 20071231
  Transmission Date: 20080703
  Serious: Yes (Other)
  Sender: FDA-Public Use
  Company Number: GXKR2007GB11032

PATIENT
  Age: 69 Year
  Sex: Female

DRUGS (4)
  1. LISINOPRIL [Suspect]
     Indication: HYPERTENSION
     Dosage: 2.5 MG, ORAL
     Route: 048
     Dates: start: 20070126, end: 20070226
  2. CO-TENIDONE (ATENOLOL, CHLORTALIDONE) [Concomitant]
  3. METROGEL [Concomitant]
  4. OMEPRAZOLE [Concomitant]

REACTIONS (1)
  - COLITIS MICROSCOPIC [None]
